FAERS Safety Report 15208840 (Version 1)
Quarter: 2018Q3

REPORT INFORMATION
  Report Type: Spontaneous
  Country: US (occurrence: US)
  Receive Date: 20180727
  Receipt Date: 20180727
  Transmission Date: 20181010
  Serious: Yes (Hospitalization)
  Sender: FDA-Public Use
  Company Number: US-OTSUKA-2018_026604

PATIENT
  Age: 41 Year
  Sex: Male

DRUGS (2)
  1. ABILIFY [Suspect]
     Active Substance: ARIPIPRAZOLE
     Indication: BIPOLAR DISORDER
  2. ABILIFY [Suspect]
     Active Substance: ARIPIPRAZOLE
     Indication: MANIA
     Dosage: UNK
     Route: 065

REACTIONS (3)
  - Treatment noncompliance [Unknown]
  - Inability to afford medication [Unknown]
  - Mania [Unknown]

NARRATIVE: CASE EVENT DATE: 201807
